FAERS Safety Report 22359527 (Version 1)
Quarter: 2023Q2

REPORT INFORMATION
  Report Type: Report from Study
  Country: US (occurrence: US)
  Receive Date: 20230524
  Receipt Date: 20230524
  Transmission Date: 20230722
  Serious: Yes (Other)
  Sender: FDA-Public Use
  Company Number: US-ABBVIE-5177850

PATIENT
  Sex: Female

DRUGS (1)
  1. SKYRIZI [Suspect]
     Active Substance: RISANKIZUMAB-RZAA
     Indication: Crohn^s disease
     Route: 058
     Dates: start: 20230109

REACTIONS (4)
  - Haematocrit decreased [Unknown]
  - Haemorrhage [Unknown]
  - Crohn^s disease [Recovering/Resolving]
  - Haemoglobin decreased [Unknown]
